FAERS Safety Report 20625199 (Version 1)
Quarter: 2022Q1

REPORT INFORMATION
  Report Type: Spontaneous
  Country: US (occurrence: US)
  Receive Date: 20220323
  Receipt Date: 20220323
  Transmission Date: 20220424
  Serious: Yes (Other)
  Sender: FDA-Public Use
  Company Number: US-AMGEN-USASP2022047062

PATIENT
  Age: 67 Year
  Sex: Male

DRUGS (3)
  1. EPOETIN ALFA [Suspect]
     Active Substance: ERYTHROPOIETIN
     Indication: Prophylaxis
     Dosage: UNK UNK, QD
     Route: 058
  2. FERRIC SODIUM GLUCONATE [Concomitant]
     Indication: Prophylaxis
     Dosage: UNK UNK, QD
     Route: 042
  3. FERRIC SODIUM GLUCONATE [Concomitant]
     Indication: Haemoglobin decreased

REACTIONS (3)
  - Foot amputation [Recovering/Resolving]
  - Haemoglobin decreased [Recovering/Resolving]
  - Iron deficiency [Recovering/Resolving]
